FAERS Safety Report 6413195-5 (Version None)
Quarter: 2009Q4

REPORT INFORMATION
  Report Type: 
  Country: None (occurrence: None)
  Receive Date: 20091026
  Receipt Date: 20091012
  Transmission Date: 20100525
  Serious: Yes (Hospitalization)
  Sender: FDA-Public Use
  Company Number: PHHY2009MX44421

PATIENT
  Age: 55 Year
  Sex: Male

DRUGS (1)
  1. DIOVAN HCT [Suspect]
     Indication: HYPERTENSION
     Dosage: 1 TABLET (160/12.5 MG) DAILY
     Route: 048
     Dates: start: 20090701, end: 20090915

REACTIONS (4)
  - HYPOTENSION [None]
  - INFECTION [None]
  - LARYNGECTOMY [None]
  - WEIGHT DECREASED [None]
